FAERS Safety Report 8136768-0 (Version None)
Quarter: 2012Q1

REPORT INFORMATION
  Report Type: 
  Country: None (occurrence: None)
  Receive Date: 20120214
  Receipt Date: 20120209
  Transmission Date: 20120608
  Serious: Yes (Other)
  Sender: FDA-Public Use
  Company Number: FR-AMGEN-FRASP2012008693

PATIENT
  Age: 86 Year
  Sex: Female

DRUGS (2)
  1. ARANESP [Suspect]
     Indication: RENAL FAILURE
     Dosage: 300 MUG, UNK
  2. ARANESP [Suspect]
     Dosage: 500 MUG, UNK
     Dates: end: 20120101

REACTIONS (1)
  - BLAST CELL COUNT INCREASED [None]
